FAERS Safety Report 19960340 (Version 1)
Quarter: 2021Q4

REPORT INFORMATION
  Report Type: Spontaneous
  Country: US (occurrence: US)
  Receive Date: 20211015
  Receipt Date: 20211015
  Transmission Date: 20220303
  Serious: Yes (Other)
  Sender: FDA-Public Use
  Company Number: US-PFIZER INC-2021332298

PATIENT
  Age: 76 Year
  Sex: Female
  Weight: 68.04 kg

DRUGS (5)
  1. DILANTIN [Suspect]
     Active Substance: PHENYTOIN
     Indication: Seizure
     Dosage: 100 MG, 3X/DAY (3 TIMES A DAY- BREAKFAST, LUNCH AND BEDTIME)
     Dates: start: 1973
  2. PRAMIPEXOLE [Concomitant]
     Active Substance: PRAMIPEXOLE
     Dosage: 0.5 MG (TAKE 1 TABLET IN THE MORNING AND 1 AT NIGHT)
  3. GABAPENTIN [Concomitant]
     Active Substance: GABAPENTIN
     Dosage: 100 MG, 2X/DAY
     Dates: start: 20210202
  4. PRIMIDONE [Concomitant]
     Active Substance: PRIMIDONE
     Indication: Tremor
     Dosage: 150 MG, 3X/DAY (50 MG 3 TABLETS 3 TIMES A DAY)
     Route: 048
  5. ZONISAMIDE [Concomitant]
     Active Substance: ZONISAMIDE
     Dosage: 2 DF, DAILY (TAKE ONE IN THE MORNING AND ONE IN THE EVENING)
     Dates: start: 20210218, end: 20210304

REACTIONS (9)
  - Neuropathy peripheral [Unknown]
  - Gait disturbance [Recovering/Resolving]
  - Fall [Unknown]
  - Discomfort [Unknown]
  - Drug level increased [Unknown]
  - Visual impairment [Unknown]
  - Balance disorder [Unknown]
  - Accident [Unknown]
  - Memory impairment [Unknown]

NARRATIVE: CASE EVENT DATE: 20170101
